FAERS Safety Report 5485167-9 (Version None)
Quarter: 2007Q4

REPORT INFORMATION
  Report Type: 
  Country: None (occurrence: None)
  Receive Date: 20071015
  Receipt Date: 20071009
  Transmission Date: 20080405
  Serious: Yes (Hospitalization)
  Sender: FDA-Public Use
  Company Number: PHNU2007DE03382

PATIENT
  Age: 23 Year
  Sex: Female

DRUGS (1)
  1. SYNTOCINON [Suspect]
     Indication: LABOUR STIMULATION
     Dosage: UNK, UNK
     Route: 045
     Dates: start: 20070919, end: 20070919

REACTIONS (2)
  - CAESAREAN SECTION [None]
  - INTRA-UTERINE DEATH [None]
